FAERS Safety Report 17261920 (Version 2)
Quarter: 2020Q1

REPORT INFORMATION
  Report Type: Spontaneous
  Country: US (occurrence: US)
  Receive Date: 20200113
  Receipt Date: 20200224
  Transmission Date: 20200409
  Serious: Yes (Death, Hospitalization, Other)
  Sender: FDA-Public Use
  Company Number: US-GLAXOSMITHKLINE-US2020GSK001411

PATIENT
  Age: 32 Year
  Sex: Male

DRUGS (3)
  1. BUPROPION XR [Suspect]
     Active Substance: BUPROPION
     Indication: PRODUCT USED FOR UNKNOWN INDICATION
     Dosage: 2 HANDFULS OF 150MG TABLETS
     Route: 048
  2. ALPRAZOLAM. [Concomitant]
     Active Substance: ALPRAZOLAM
     Indication: PRODUCT USED FOR UNKNOWN INDICATION
     Dosage: UNK
  3. ALCOHOL. [Suspect]
     Active Substance: ALCOHOL
     Indication: PRODUCT USED FOR UNKNOWN INDICATION
     Dosage: UNK
     Route: 048

REACTIONS (9)
  - Completed suicide [Fatal]
  - Electrocardiogram QRS complex prolonged [Unknown]
  - Mental impairment [Unknown]
  - Seizure [Unknown]
  - Intentional overdose [Fatal]
  - Hypotension [Unknown]
  - Ventricular hypokinesia [Unknown]
  - Shock [Unknown]
  - Congestive cardiomyopathy [Unknown]
